FAERS Safety Report 21477344 (Version 1)
Quarter: 2022Q4

REPORT INFORMATION
  Report Type: Spontaneous
  Country: US (occurrence: US)
  Receive Date: 20221019
  Receipt Date: 20221019
  Transmission Date: 20230113
  Serious: No
  Sender: FDA-Public Use
  Company Number: US-ALLERGAN-2207410US

PATIENT
  Sex: Female
  Weight: 64.41 kg

DRUGS (13)
  1. LINZESS [Suspect]
     Active Substance: LINACLOTIDE
     Indication: Irritable bowel syndrome
     Dosage: 290 ?G, BID
     Route: 048
  2. LINZESS [Suspect]
     Active Substance: LINACLOTIDE
     Dosage: ONCE DAILY BETWEEN 10-11AM
  3. LINZESS [Suspect]
     Active Substance: LINACLOTIDE
     Dosage: ONCE DAILY BETWEEN 10-11AM
  4. LINZESS [Suspect]
     Active Substance: LINACLOTIDE
     Dosage: ONCE DAILY BETWEEN 10-11AM
  5. LEXAPRO [Concomitant]
     Active Substance: ESCITALOPRAM OXALATE
     Dosage: DAILY
  6. CLYCLOBENZARINE [Concomitant]
     Dosage: AS NEEDED
  7. ZOFRAN [Concomitant]
     Active Substance: ONDANSETRON HYDROCHLORIDE
     Dosage: OCCASIONAL
  8. FLEXERIL [Concomitant]
     Active Substance: CYCLOBENZAPRINE HYDROCHLORIDE
  9. ONDANSETRON [Concomitant]
     Active Substance: ONDANSETRON
     Indication: Nausea
  10. TYLENOL [Concomitant]
     Active Substance: ACETAMINOPHEN
  11. OMEPRAZOLE [Concomitant]
     Active Substance: OMEPRAZOLE
  12. LITHIUM [Concomitant]
     Active Substance: LITHIUM
  13. PREDNISONE [Concomitant]
     Active Substance: PREDNISONE
     Dosage: AS NEEDED

REACTIONS (2)
  - Intentional dose omission [Unknown]
  - Drug ineffective [Unknown]
